FAERS Safety Report 8604786-1 (Version None)
Quarter: 2012Q3

REPORT INFORMATION
  Report Type: 
  Country: None (occurrence: None)
  Receive Date: 20120820
  Receipt Date: 20120810
  Transmission Date: 20120928
  Serious: Yes (Other)
  Sender: FDA-Public Use
  Company Number: DE-ELI_LILLY_AND_COMPANY-DE201207003497

PATIENT
  Sex: Female

DRUGS (1)
  1. FORTEO [Suspect]
     Indication: OSTEOPOROSIS
     Dosage: UNK, QD
     Dates: start: 20120627

REACTIONS (5)
  - DECREASED APPETITE [None]
  - BREAST DISORDER [None]
  - NAUSEA [None]
  - CARDIOVASCULAR DISORDER [None]
  - WEIGHT DECREASED [None]
